FAERS Safety Report 10296328 (Version 1)
Quarter: 2014Q3

REPORT INFORMATION
  Report Type: Spontaneous
  Country: US (occurrence: None)
  Receive Date: 20140708
  Receipt Date: 20140708
  Transmission Date: 20150326
  Serious: Yes (Other)
  Sender: FDA-Public Use
  Company Number: None

PATIENT
  Age: 66 Year
  Sex: Female
  Weight: 90.72 kg

DRUGS (1)
  1. CRESTOR [Suspect]
     Active Substance: ROSUVASTATIN CALCIUM
     Dosage: 1/2 PER DAY?EVERY SEVERAL DAYS?TAKEN BY MOUTH
     Route: 048
     Dates: start: 20121001, end: 20140528

REACTIONS (9)
  - Glycosylated haemoglobin increased [None]
  - Pain in extremity [None]
  - Depression [None]
  - Micturition urgency [None]
  - Fatigue [None]
  - Blood glucose decreased [None]
  - Paraesthesia [None]
  - Memory impairment [None]
  - Dysphagia [None]

NARRATIVE: CASE EVENT DATE: 20140416
